FAERS Safety Report 22194979 (Version 1)
Quarter: 2023Q2

REPORT INFORMATION
  Report Type: Spontaneous
  Country: FR (occurrence: FR)
  Receive Date: 20230411
  Receipt Date: 20230411
  Transmission Date: 20230721
  Serious: Yes (Other)
  Sender: FDA-Public Use
  Company Number: FR-BAYER-2021A270019

PATIENT
  Age: 23 Year
  Sex: Male
  Weight: 104 kg

DRUGS (3)
  1. XARELTO [Suspect]
     Active Substance: RIVAROXABAN
     Indication: Deep vein thrombosis
     Route: 048
  2. XARELTO [Suspect]
     Active Substance: RIVAROXABAN
     Indication: Deep vein thrombosis
     Dosage: 20 MG, UNK
     Route: 048
     Dates: start: 20201207
  3. DEPAKINE CRONO [VALPROATE SODIUM] [Concomitant]
     Indication: Epilepsy

REACTIONS (1)
  - Deep vein thrombosis [Not Recovered/Not Resolved]
